FAERS Safety Report 6476838-6 (Version None)
Quarter: 2009Q4

REPORT INFORMATION
  Report Type: 
  Country: None (occurrence: None)
  Receive Date: 20091204
  Receipt Date: 20091204
  Transmission Date: 20100525
  Serious: Yes (Hospitalization)
  Sender: FDA-Public Use
  Company Number: None

PATIENT
  Sex: Male
  Weight: 115.6672 kg

DRUGS (1)
  1. JANUVIA [Suspect]

REACTIONS (3)
  - GALLBLADDER DISORDER [None]
  - HYPERTRIGLYCERIDAEMIA [None]
  - PANCREATITIS [None]
